FAERS Safety Report 19823293 (Version 1)
Quarter: 2021Q3

REPORT INFORMATION
  Report Type: Spontaneous
  Country: RU (occurrence: FR)
  Receive Date: 20210913
  Receipt Date: 20210913
  Transmission Date: 20211014
  Serious: Yes (Hospitalization, Other)
  Sender: FDA-Public Use
  Company Number: FR-BRAINTREE LABORATORIES, INC.-2020BTE04745

PATIENT
  Age: 65 Year
  Sex: Female
  Weight: 57.5 kg

DRUGS (1)
  1. EZICLEN [Suspect]
     Active Substance: MAGNESIUM SULFATE\POTASSIUM SULFATE\SODIUM SULFATE
     Indication: COLONOSCOPY
     Dosage: 1 DOSAGE UNITS, 2X/DAY (12 HOURS APART)
     Route: 048
     Dates: start: 20200923, end: 20200923

REACTIONS (14)
  - Vomiting [Recovered/Resolved]
  - Decreased appetite [Recovered/Resolved]
  - Blood pressure decreased [Not Recovered/Not Resolved]
  - Nausea [Recovered/Resolved]
  - Depression [Not Recovered/Not Resolved]
  - Haemoglobin decreased [Unknown]
  - COVID-19 pneumonia [Recovering/Resolving]
  - Presyncope [Recovering/Resolving]
  - Muscular weakness [Not Recovered/Not Resolved]
  - Dizziness [Not Recovered/Not Resolved]
  - Weight decreased [Recovering/Resolving]
  - Headache [Recovering/Resolving]
  - Feeling abnormal [Recovering/Resolving]
  - Wrong technique in product usage process [Recovered/Resolved]

NARRATIVE: CASE EVENT DATE: 2020
